FAERS Safety Report 12328661 (Version 1)
Quarter: 2016Q2

REPORT INFORMATION
  Report Type: Spontaneous
  Country: US (occurrence: US)
  Receive Date: 20160503
  Receipt Date: 20160503
  Transmission Date: 20160815
  Serious: No
  Sender: FDA-Public Use
  Company Number: US-BEH-2015050011

PATIENT
  Sex: Female
  Weight: 49 kg

DRUGS (21)
  1. CEPHALEXIN. [Concomitant]
     Active Substance: CEPHALEXIN
  2. DIPHENHYDRAMINE. [Concomitant]
     Active Substance: DIPHENHYDRAMINE
  3. BACTRIM [Concomitant]
     Active Substance: SULFAMETHOXAZOLE\TRIMETHOPRIM
  4. RITUXAN [Concomitant]
     Active Substance: RITUXIMAB
  5. EPIPEN [Concomitant]
     Active Substance: EPINEPHRINE
  6. ZANTAC [Concomitant]
     Active Substance: RANITIDINE HYDROCHLORIDE
  7. BONIVA [Concomitant]
     Active Substance: IBANDRONATE SODIUM
  8. ADVAIR HFA [Concomitant]
     Active Substance: FLUTICASONE PROPIONATE\SALMETEROL XINAFOATE
  9. OXYGEN. [Concomitant]
     Active Substance: OXYGEN
  10. VERAMYST [Concomitant]
     Active Substance: FLUTICASONE FUROATE
  11. LMX [Concomitant]
     Active Substance: LIDOCAINE
  12. XANAX [Concomitant]
     Active Substance: ALPRAZOLAM
  13. HIZENTRA [Suspect]
     Active Substance: HUMAN IMMUNOGLOBULIN G
     Indication: IMMUNODEFICIENCY COMMON VARIABLE
     Route: 058
  14. LIDOCAINE/PRILOCAINE [Concomitant]
  15. HYDROCHLOROTHIAZIDE. [Concomitant]
     Active Substance: HYDROCHLOROTHIAZIDE
  16. VALTREX [Concomitant]
     Active Substance: VALACYCLOVIR HYDROCHLORIDE
  17. NYSTATIN. [Concomitant]
     Active Substance: NYSTATIN
  18. PREDNISONE. [Concomitant]
     Active Substance: PREDNISONE
  19. AUGMENTIN [Concomitant]
     Active Substance: AMOXICILLIN\CLAVULANATE POTASSIUM
  20. CLOTRIMAZOLE. [Concomitant]
     Active Substance: CLOTRIMAZOLE
  21. HYDROMET [Concomitant]
     Active Substance: HOMATROPINE METHYLBROMIDE\HYDROCODONE BITARTRATE

REACTIONS (2)
  - Influenza like illness [Unknown]
  - Chills [Unknown]
